FAERS Safety Report 16945195 (Version 1)
Quarter: 2019Q4

REPORT INFORMATION
  Report Type: Spontaneous
  Country: US (occurrence: RU)
  Receive Date: 20191022
  Receipt Date: 20191022
  Transmission Date: 20200122
  Serious: Yes (Hospitalization)
  Sender: FDA-Public Use
  Company Number: US-BAYER-2019-187952

PATIENT
  Age: 32 Year
  Sex: Female

DRUGS (1)
  1. CIPROFLOXACIN. [Suspect]
     Active Substance: CIPROFLOXACIN
     Dosage: UNK

REACTIONS (5)
  - Oral mucosal eruption [Recovered/Resolved]
  - Pemphigus [Recovered/Resolved]
  - Enanthema [Recovered/Resolved]
  - Purulent discharge [Recovered/Resolved]
  - Rash [Recovered/Resolved]
